FAERS Safety Report 7037017-7 (Version None)
Quarter: 2010Q4

REPORT INFORMATION
  Report Type: 
  Country: None (occurrence: None)
  Receive Date: 20101011
  Receipt Date: 20101007
  Transmission Date: 20110411
  Serious: Yes (Life-Threatening, Hospitalization, Disabling)
  Sender: FDA-Public Use
  Company Number: DE-SANOFI-AVENTIS-2010SA047350

PATIENT
  Age: 51 Year
  Sex: Male
  Weight: 90 kg

DRUGS (10)
  1. MULTAQ [Suspect]
     Indication: ATRIAL FIBRILLATION
     Route: 048
     Dates: start: 20100717, end: 20100719
  2. ACETYLCYSTEINE [Concomitant]
     Indication: COUGH
     Route: 048
     Dates: start: 20100715, end: 20100719
  3. TORASEMIDE [Concomitant]
     Indication: DYSPNOEA
     Route: 048
     Dates: start: 20100716, end: 20100719
  4. TORASEMIDE [Concomitant]
     Route: 048
     Dates: start: 20100716, end: 20100719
  5. DELIX [Concomitant]
     Dosage: DOSAGE: 1/2 TABLET DAILY
     Route: 048
     Dates: start: 20100716, end: 20100719
  6. ACETYLSALICYLIC ACID SRT [Concomitant]
     Route: 048
     Dates: start: 20100717, end: 20100719
  7. METOPROLOL SUCCINATE [Concomitant]
     Route: 048
     Dates: start: 20100717, end: 20100719
  8. CEPHORAL [Concomitant]
     Indication: PNEUMONIA
     Route: 048
     Dates: start: 20100715, end: 20100719
  9. RULID [Concomitant]
     Indication: PNEUMONIA
     Route: 048
     Dates: start: 20100717, end: 20100719
  10. PANTOPRAZOLE SODIUM [Concomitant]
     Indication: PRODUCT USED FOR UNKNOWN INDICATION
     Route: 048
     Dates: start: 20100716, end: 20100719

REACTIONS (4)
  - CARDIAC ARREST [None]
  - CARDIOPULMONARY FAILURE [None]
  - ELECTROCARDIOGRAM QT PROLONGED [None]
  - LOSS OF CONSCIOUSNESS [None]
